FAERS Safety Report 9817797 (Version 1)
Quarter: 2013Q4

REPORT INFORMATION
  Report Type: Spontaneous
  Country: US (occurrence: None)
  Receive Date: 20131223
  Receipt Date: 20131223
  Transmission Date: 20140711
  Serious: No
  Sender: FDA-Public Use
  Company Number: 218843

PATIENT
  Age: 63 Year
  Sex: Female

DRUGS (1)
  1. PICATO GEL [Suspect]
     Indication: ACTINIC KERATOSIS
     Dosage: TOPICAL
     Dates: start: 201204

REACTIONS (8)
  - Eye swelling [None]
  - Nasal discomfort [None]
  - Throat irritation [None]
  - Application site vesicles [None]
  - Application site erythema [None]
  - Application site pustules [None]
  - Application site discomfort [None]
  - Application site discharge [None]
